FAERS Safety Report 10375599 (Version 2)
Quarter: 2016Q1

REPORT INFORMATION
  Report Type: Spontaneous
  Country: US (occurrence: US)
  Receive Date: 20140811
  Receipt Date: 20160331
  Transmission Date: 20160525
  Serious: Yes (Hospitalization, Other)
  Sender: FDA-Public Use
  Company Number: US-GLAXOSMITHKLINE-A1040849A

PATIENT
  Sex: Male

DRUGS (3)
  1. REQUIP XL [Suspect]
     Active Substance: ROPINIROLE HYDROCHLORIDE
     Indication: PARKINSON^S DISEASE
     Dosage: 8 MG AND 12 MG TABLETS OR 20 MG ONCE DAILY
     Route: 048
     Dates: start: 20100817
  2. TYLENOL WITH CODEINE [Concomitant]
     Active Substance: ACETAMINOPHEN\CODEINE PHOSPHATE
  3. ELAVIL [Concomitant]
     Active Substance: AMITRIPTYLINE HYDROCHLORIDE

REACTIONS (7)
  - Weight decreased [Unknown]
  - Balance disorder [Unknown]
  - Diverticulitis [Recovering/Resolving]
  - Computerised tomogram [Unknown]
  - Dehydration [Recovering/Resolving]
  - Parkinsonism [Unknown]
  - Fall [Unknown]

NARRATIVE: CASE EVENT DATE: 2016
